FAERS Safety Report 11727518 (Version 1)
Quarter: 2015Q4

REPORT INFORMATION
  Report Type: Spontaneous
  Country: CA (occurrence: CA)
  Receive Date: 20151112
  Receipt Date: 20151112
  Transmission Date: 20160304
  Serious: Yes (Other)
  Sender: FDA-Public Use
  Company Number: CA-ELI_LILLY_AND_COMPANY-CA201511001157

PATIENT
  Sex: Female

DRUGS (1)
  1. CYMBALTA [Suspect]
     Active Substance: DULOXETINE HYDROCHLORIDE
     Indication: NEUROPATHY PERIPHERAL
     Dosage: 120 MG, QD
     Route: 065
     Dates: end: 20151018

REACTIONS (6)
  - Drug withdrawal syndrome [Unknown]
  - Suicidal ideation [Unknown]
  - Anger [Unknown]
  - Insomnia [Unknown]
  - Off label use [Unknown]
  - Aggression [Unknown]
